FAERS Safety Report 23921595 (Version 1)
Quarter: 2024Q2

REPORT INFORMATION
  Report Type: Spontaneous
  Country: BR (occurrence: BR)
  Receive Date: 20240530
  Receipt Date: 20240530
  Transmission Date: 20240716
  Serious: Yes (Hospitalization, Other)
  Sender: FDA-Public Use
  Company Number: BR-SA-SAC20231115001408

PATIENT
  Age: 1 Year
  Sex: Male
  Weight: 7.9 kg

DRUGS (22)
  1. SABRIL [Suspect]
     Active Substance: VIGABATRIN
     Indication: Infantile spasms
     Dosage: 1 DF, Q8H,  (DILUTE 1 TABLET IN 5 ML OF WATER AND ADMINISTER THE ENTIRE VOLUME AT 8A.M., 4P.M. AND 1
     Route: 065
  2. SABRIL [Suspect]
     Active Substance: VIGABATRIN
     Indication: Microcephaly
     Route: 065
  3. ENOXAPARIN SODIUM [Concomitant]
     Active Substance: ENOXAPARIN SODIUM
     Indication: Peripheral artery thrombosis
     Dosage: 1.5 MG/KG
     Route: 065
  4. BACTRIM [Concomitant]
     Active Substance: SULFAMETHOXAZOLE\TRIMETHOPRIM
     Indication: Product used for unknown indication
     Dosage: UNK
     Route: 065
  5. CANNABIDIOL [Concomitant]
     Active Substance: CANNABIDIOL
     Indication: Product used for unknown indication
     Dosage: UNK UNK, BID (ADMINISTER 20UE100 AT 9A.M. AND 9P.M)
     Route: 065
  6. TOPIRAMATE [Concomitant]
     Active Substance: TOPIRAMATE
     Indication: Infantile spasms
     Dosage: 2 DF, BID (: DILUTE 2 TABLETS IN 10ML OF WATER AND ADMINISTER 7.5ML AT 9A.M. AND 9P.M)
     Route: 065
  7. TOPIRAMATE [Concomitant]
     Active Substance: TOPIRAMATE
     Indication: Epilepsy
  8. LEVETIRACETAM [Concomitant]
     Active Substance: LEVETIRACETAM
     Indication: Epilepsy
     Dosage: 2.5 ML, Q12H
     Route: 065
  9. NITRAZEPAM [Concomitant]
     Active Substance: NITRAZEPAM
     Indication: Product used for unknown indication
     Dosage: 1 DF, BID (DILUTE 1 TABLET IN 8ML OF WATER AND ADMINISTER 2ML AT 9A.M. AND 9P.M.)
     Route: 065
  10. GABAPENTIN [Concomitant]
     Active Substance: GABAPENTIN
     Indication: Epilepsy
     Dosage: 1 DF, Q8H (DILUTE 1 TABLET IN 10ML OF WATER AND ADMINISTER 3ML AT 8A.M., 4P.M. AND 12A.M)
     Route: 065
  11. CLONIDINE [Concomitant]
     Active Substance: CLONIDINE
     Indication: Product used for unknown indication
     Dosage: DILUTE 1 TABLET IN 15ML AND GIVE 5ML EVERY 6 HOURS
     Route: 065
  12. MORPHINE [Concomitant]
     Active Substance: MORPHINE
     Indication: Product used for unknown indication
     Dosage: UNK UNK, Q4H (DILUTE THE PACKET IN 3ML OF WATER AND ADMINISTER 1ML EVERY 4 HOURS (SUGGESTED TIMES: 6
     Route: 065
  13. ESOMEPRAZOLE [Concomitant]
     Active Substance: ESOMEPRAZOLE
     Indication: Product used for unknown indication
     Dosage: 1 DF, Q6H (DILUTE 1 TABLET IN 10ML AND ADMINISTER 4ML EVERY 6 HOURS)
     Route: 065
  14. FERROUS SULFATE [Concomitant]
     Active Substance: FERROUS SULFATE
     Indication: Product used for unknown indication
     Dosage: UNK
     Route: 065
  15. SULFAMETHOXAZOLE [Concomitant]
     Active Substance: SULFAMETHOXAZOLE
     Indication: Product used for unknown indication
     Dosage: 40080 MG
     Route: 065
  16. TRIMETHOPRIM [Concomitant]
     Active Substance: TRIMETHOPRIM
     Indication: Product used for unknown indication
     Dosage: : DILUTE HALF A TABLET IN 5ML OF WATER AND GIVE 3ML AT 8A.M
     Route: 065
  17. ATROPINE [Concomitant]
     Active Substance: ATROPINE\ATROPINE SULFATE
     Indication: Product used for unknown indication
     Dosage: APPLY 2 DROPS SUBLINGUALLY EVERY 4 HOURS (IF ATROPINE 0.5%, USE 4 DROPS),
     Route: 065
  18. VITAMIN D NOS [Concomitant]
     Active Substance: CHOLECALCIFEROL\ERGOCALCIFEROL
     Indication: Product used for unknown indication
     Dosage: 5 DROP, QD AT 5 P.M
     Route: 065
  19. LITOCIT [Concomitant]
     Indication: Product used for unknown indication
     Dosage: (DILUTE 1 TABLET IN 10ML OF WATER AND GIVE 4ML EVERY 12 HOURS)0.33 DF, Q12H
     Route: 065
  20. MALTODEXTRIN [Concomitant]
     Active Substance: MALTODEXTRIN
     Indication: Product used for unknown indication
     Dosage: UNK UNK, PRN (: IF NECESSARY, CORRECTION WITH 5G PLUS 20ML OF FILTERED WATER IF KETONEMIA GREATER TH
     Route: 065
  21. PEG [PREGABALIN] [Concomitant]
     Indication: Product used for unknown indication
     Dosage: UNK UNK, QD (DILUTE 1 ENVELOPE IN 50ML OF WATER AND GIVE ONCE A DAY0
     Route: 065
  22. FERROUS SULFATE [FERROUS SULFATE HEPTAHYDRATE] [Concomitant]
     Indication: Product used for unknown indication
     Route: 065

REACTIONS (9)
  - Cardio-respiratory arrest [Unknown]
  - Bronchiolitis [Unknown]
  - Bedridden [Unknown]
  - Stridor [Unknown]
  - Dysphagia [Unknown]
  - Condition aggravated [Unknown]
  - Seizure [Unknown]
  - Gastrostomy [Unknown]
  - Product use in unapproved indication [Unknown]

NARRATIVE: CASE EVENT DATE: 20221007
